FAERS Safety Report 7861530-3 (Version None)
Quarter: 2011Q4

REPORT INFORMATION
  Report Type: 
  Country: None (occurrence: None)
  Receive Date: 20111027
  Receipt Date: 20111020
  Transmission Date: 20120403
  Serious: Yes (Life-Threatening)
  Sender: FDA-Public Use
  Company Number: US-BAXTER-2011BH029315

PATIENT
  Age: 63 Year
  Sex: Female
  Weight: 127 kg

DRUGS (3)
  1. DOPAMINE HCL IN 5% DEXTROSE [Suspect]
     Indication: BRADYCARDIA
     Route: 058
     Dates: start: 20110914, end: 20110918
  2. LEVOPHED [Suspect]
     Indication: HYPOTENSION
     Route: 058
     Dates: start: 20110901, end: 20110901
  3. DOPAMINE HCL IN 5% DEXTROSE [Suspect]
     Indication: HYPOTENSION
     Route: 058
     Dates: start: 20110914, end: 20110918

REACTIONS (3)
  - INFUSION SITE EXTRAVASATION [None]
  - INCORRECT ROUTE OF DRUG ADMINISTRATION [None]
  - INFLAMMATION [None]
